FAERS Safety Report 15849515 (Version 1)
Quarter: 2019Q1

REPORT INFORMATION
  Report Type: Spontaneous
  Country: IT (occurrence: IT)
  Receive Date: 20190121
  Receipt Date: 20190121
  Transmission Date: 20190417
  Serious: Yes (Other)
  Sender: FDA-Public Use
  Company Number: IT-TEVA-2019-IT-1001611

PATIENT
  Age: 69 Year
  Sex: Female

DRUGS (6)
  1. TICLOPIDINE [Suspect]
     Active Substance: TICLOPIDINE
     Indication: THROMBOSIS PROPHYLAXIS
     Dosage: 250 MICROGRAM DAILY;
     Route: 048
  2. INSULIN GLARGINE [Concomitant]
     Active Substance: INSULIN GLARGINE
  3. PROVISACOR 10 MG COMPRESSE RIVESTITE CON FILM [Concomitant]
  4. PANTOPRAZOLE [Concomitant]
     Active Substance: PANTOPRAZOLE
  5. LAROXYL 10 MG COMPRESSE RIVESTITE [Concomitant]
     Active Substance: AMITRIPTYLINE HYDROCHLORIDE
  6. KARVEA [Concomitant]
     Active Substance: IRBESARTAN

REACTIONS (1)
  - Melaena [Recovering/Resolving]

NARRATIVE: CASE EVENT DATE: 20180405
